FAERS Safety Report 6812868-X (Version None)
Quarter: 2010Q3

REPORT INFORMATION
  Report Type: 
  Country: None (occurrence: None)
  Receive Date: 20100701
  Receipt Date: 20100624
  Transmission Date: 20110219
  Serious: Yes (Hospitalization)
  Sender: FDA-Public Use
  Company Number: DE-B.I. PHARMACEUTICALS,INC./RIDGEFIELD-2010-DE-03382DE

PATIENT
  Sex: Male
  Weight: 105 kg

DRUGS (5)
  1. SPIRIVA [Suspect]
     Indication: CHRONIC OBSTRUCTIVE PULMONARY DISEASE
     Dosage: 18 MCG
     Route: 055
     Dates: start: 20100111, end: 20100204
  2. LANTUS [Concomitant]
     Indication: DIABETES MELLITUS
     Dosage: PARENTERAL 0-0-ISE
  3. ATACANT 8 [Concomitant]
     Dosage: 8 MG
     Route: 048
  4. TOREM 10 [Concomitant]
     Dosage: 20 MG
     Route: 048
  5. METFORMIN 850 [Concomitant]
     Dosage: 2550 MG
     Route: 048

REACTIONS (2)
  - CORONARY ARTERY DISEASE [None]
  - DYSPNOEA [None]
